FAERS Safety Report 5845086-2 (Version None)
Quarter: 2008Q3

REPORT INFORMATION
  Report Type: 
  Country: None (occurrence: None)
  Receive Date: 20080813
  Receipt Date: 20080813
  Transmission Date: 20090109
  Serious: Yes (Hospitalization, Disabling)
  Sender: FDA-Public Use
  Company Number: None

PATIENT
  Age: 67 Year
  Sex: Male
  Weight: 101 kg

DRUGS (8)
  1. TEMSIROLIMUS 25MG/ML WYETH [Suspect]
     Indication: METASTATIC RENAL CELL CARCINOMA
     Dosage: 25MG ONCE IV
     Route: 042
     Dates: start: 20080605, end: 20080710
  2. NORVASC [Concomitant]
  3. METOPROLOL TARTRATE [Concomitant]
  4. SYNTHROID [Concomitant]
  5. PEPCID [Concomitant]
  6. METFORMIN HCL [Concomitant]
  7. BACTRIM DS [Concomitant]
  8. DIPHENHYDRAMINE HCL [Concomitant]

REACTIONS (6)
  - DRUG TOXICITY [None]
  - PLEURAL EFFUSION [None]
  - PULMONARY ARTERIOPATHY [None]
  - PULMONARY OEDEMA [None]
  - PULMONARY TOXICITY [None]
  - RADIATION PNEUMONITIS [None]
